FAERS Safety Report 13156197 (Version 4)
Quarter: 2017Q4

REPORT INFORMATION
  Report Type: Spontaneous
  Country: FR (occurrence: FR)
  Receive Date: 20170126
  Receipt Date: 20171025
  Transmission Date: 20180320
  Serious: Yes (Life-Threatening, Hospitalization, Disabling, Other)
  Sender: FDA-Public Use
  Company Number: FR-TEVA-731928ROM

PATIENT
  Age: 36 Year
  Sex: Male
  Weight: 75 kg

DRUGS (4)
  1. COTRIMOXAZOLE [Suspect]
     Active Substance: SULFAMETHOXAZOLE\TRIMETHOPRIM
     Indication: BACTERIAL PROSTATITIS
     Dosage: DAILY DOSE: 2 DOSAGE FORMS; 1 DOSAGE FORM= 800 MG SULFAMETHOXAZOLE + 160 MG TRIMETHOPRIM.
     Dates: start: 2016, end: 20160211
  2. COTRIMOXAZOLE [Suspect]
     Active Substance: SULFAMETHOXAZOLE\TRIMETHOPRIM
     Indication: PANCREATITIS ACUTE
  3. DOLIPRANE [Concomitant]
     Active Substance: ACETAMINOPHEN
     Indication: INFLUENZA
     Dosage: 3 DOSAGE FORMS DAILY;
     Route: 065
     Dates: start: 201602
  4. IBUPROFEN 400 MG [Concomitant]
     Active Substance: IBUPROFEN
     Indication: INFLUENZA
     Dosage: 2 DOSAGE FORMS DAILY;
     Route: 065
     Dates: start: 201602

REACTIONS (44)
  - Epilepsy [Not Recovered/Not Resolved]
  - Toxic epidermal necrolysis [Recovered/Resolved with Sequelae]
  - Acute kidney injury [Recovered/Resolved]
  - Arthralgia [Not Recovered/Not Resolved]
  - Growth of eyelashes [Unknown]
  - Dyschezia [Not Recovered/Not Resolved]
  - Skin disorder [Unknown]
  - Vomiting [Recovered/Resolved]
  - Eye irritation [Not Recovered/Not Resolved]
  - Asthenopia [Not Recovered/Not Resolved]
  - Lung disorder [Recovered/Resolved]
  - Eye injury [Not Recovered/Not Resolved]
  - Pain [Recovered/Resolved]
  - Swelling [Unknown]
  - Proctalgia [Not Recovered/Not Resolved]
  - Lacrimation increased [Not Recovered/Not Resolved]
  - Ocular discomfort [Not Recovered/Not Resolved]
  - Abdominal pain [Not Recovered/Not Resolved]
  - Muscular weakness [Not Recovered/Not Resolved]
  - Urethral meatus stenosis [Unknown]
  - Rhinitis [Not Recovered/Not Resolved]
  - Pyrexia [Unknown]
  - Dry eye [Not Recovered/Not Resolved]
  - Anxiety [Not Recovered/Not Resolved]
  - Vision blurred [Unknown]
  - Dysphagia [Recovering/Resolving]
  - Gait disturbance [Not Recovered/Not Resolved]
  - Pruritus [Not Recovered/Not Resolved]
  - Gingival disorder [Not Recovered/Not Resolved]
  - Dysgeusia [Not Recovered/Not Resolved]
  - Gallbladder injury [Not Recovered/Not Resolved]
  - Multiple injuries [Recovered/Resolved]
  - Fatigue [Not Recovered/Not Resolved]
  - Dysuria [Unknown]
  - Lung disorder [Not Recovered/Not Resolved]
  - Burning sensation [Unknown]
  - Septic shock [Recovered/Resolved]
  - Weight decreased [Unknown]
  - Hair texture abnormal [Unknown]
  - Injury [Not Recovered/Not Resolved]
  - Dyspnoea [Not Recovered/Not Resolved]
  - Nail atrophy [Not Recovered/Not Resolved]
  - Mental disorder [Not Recovered/Not Resolved]
  - Photophobia [Not Recovered/Not Resolved]

NARRATIVE: CASE EVENT DATE: 2016
